FAERS Safety Report 12290819 (Version 3)
Quarter: 2016Q2

REPORT INFORMATION
  Report Type: Spontaneous
  Country: JP (occurrence: JP)
  Receive Date: 20160421
  Receipt Date: 20160609
  Transmission Date: 20160815
  Serious: Yes (Hospitalization)
  Sender: FDA-Public Use
  Company Number: JP-ELI_LILLY_AND_COMPANY-JP201604005594

PATIENT
  Age: 83 Year
  Sex: Male

DRUGS (5)
  1. EXCELASE [Concomitant]
     Active Substance: PANCRELIPASE
  2. TOVIAZ [Concomitant]
     Active Substance: FESOTERODINE FUMARATE
  3. GOREISAN                           /08015901/ [Concomitant]
  4. ADONA                              /00056903/ [Concomitant]
     Active Substance: CARBAZOCHROME SODIUM SULFONATE
  5. ZALUTIA [Suspect]
     Active Substance: TADALAFIL
     Indication: PRODUCT USED FOR UNKNOWN INDICATION
     Dosage: 5 MG, QD
     Route: 048
     Dates: start: 20150514, end: 20160408

REACTIONS (1)
  - Subdural haematoma [Unknown]

NARRATIVE: CASE EVENT DATE: 20160304
